FAERS Safety Report 18616828 (Version 4)
Quarter: 2020Q4

REPORT INFORMATION
  Report Type: Report from Study
  Country: US (occurrence: US)
  Receive Date: 20201215
  Receipt Date: 20201231
  Transmission Date: 20210114
  Serious: Yes (Hospitalization, Other)
  Sender: FDA-Public Use
  Company Number: US-JNJFOC-20201219229

PATIENT
  Age: 23 Year
  Sex: Female
  Weight: 58.5 kg

DRUGS (12)
  1. INFLIXIMAB, RECOMBINANT [Suspect]
     Active Substance: INFLIXIMAB
     Indication: CROHN^S DISEASE
     Route: 042
     Dates: start: 20150111
  2. BUSPIRONE [Concomitant]
     Active Substance: BUSPIRONE HYDROCHLORIDE
  3. ESCITALOPRAM [Concomitant]
     Active Substance: ESCITALOPRAM OXALATE
  4. CHOLECALCIFEROL [Concomitant]
     Active Substance: CHOLECALCIFEROL
  5. SUMATRIPTAN AND NAPROXEN SODIUM [Concomitant]
     Active Substance: NAPROXEN SODIUM\SUMATRIPTAN SUCCINATE
  6. VITAMIN B12 [Concomitant]
     Active Substance: CYANOCOBALAMIN
  7. TIZANIDINE. [Concomitant]
     Active Substance: TIZANIDINE
  8. OMEPRAZOLE. [Concomitant]
     Active Substance: OMEPRAZOLE
  9. LEVONORGESTREL AND ETHINYL ESTRADIOL AND ETHINYL ESTRADIOL [Concomitant]
  10. CALCIUM;COLECALCIFEROL [Concomitant]
     Active Substance: CALCIUM\CHOLECALCIFEROL
  11. TOPIRAMATE. [Concomitant]
     Active Substance: TOPIRAMATE
  12. LORAZEPAM. [Concomitant]
     Active Substance: LORAZEPAM

REACTIONS (2)
  - Abdominal pain [Recovered/Resolved]
  - Psoriasis [Not Recovered/Not Resolved]

NARRATIVE: CASE EVENT DATE: 202010
